FAERS Safety Report 9703262 (Version 2)
Quarter: 2013Q4

REPORT INFORMATION
  Report Type: Spontaneous
  Country: JP (occurrence: JP)
  Receive Date: 20131122
  Receipt Date: 20131213
  Transmission Date: 20140711
  Serious: Yes (Other)
  Sender: FDA-Public Use
  Company Number: JP-JNJFOC-20131110771

PATIENT
  Age: 76 Year
  Sex: Male
  Weight: 61.22 kg

DRUGS (3)
  1. XARELTO [Suspect]
     Indication: CEREBROVASCULAR ACCIDENT PROPHYLAXIS
     Route: 048
     Dates: start: 20130814
  2. TAMBOCOR [Suspect]
     Indication: ATRIAL FIBRILLATION
     Route: 048
     Dates: start: 20090530
  3. LANSOPRAZOLE [Suspect]
     Indication: GASTRIC ULCER
     Route: 048
     Dates: start: 20130411

REACTIONS (1)
  - Embolic cerebral infarction [Recovering/Resolving]
